FAERS Safety Report 6850574-6 (Version None)
Quarter: 2010Q3

REPORT INFORMATION
  Report Type: 
  Country: None (occurrence: None)
  Receive Date: 20100716
  Receipt Date: 20071019
  Transmission Date: 20110219
  Serious: No
  Sender: FDA-Public Use
  Company Number: US-PFIZER INC-2007087661

PATIENT
  Sex: Female
  Weight: 86.4 kg

DRUGS (9)
  1. CHANTIX [Suspect]
     Indication: SMOKING CESSATION THERAPY
     Route: 048
     Dates: start: 20071007
  2. TOPAMAX [Concomitant]
  3. XANAX [Concomitant]
  4. ACETYLSALICYLIC ACID [Concomitant]
  5. WELLBUTRIN XL [Concomitant]
  6. TIAZAC [Concomitant]
  7. LIPITOR [Concomitant]
  8. GLUCOPHAGE [Concomitant]
  9. VITAMINS [Concomitant]

REACTIONS (1)
  - ANORGASMIA [None]
